FAERS Safety Report 7266801-X (Version None)
Quarter: 2011Q1

REPORT INFORMATION
  Report Type: 
  Country: None (occurrence: None)
  Receive Date: 20110121
  Receipt Date: 20050221
  Transmission Date: 20110831
  Serious: Yes (Other)
  Sender: FDA-Public Use
  Company Number: LEO-2011-00050

PATIENT
  Age: 12 Year
  Weight: 34 kg

DRUGS (2)
  1. INNOHEP [Suspect]
     Indication: PHLEBITIS
     Dosage: SUBCUTANEOUS
     Route: 058
     Dates: start: 20050201
  2. INNOHEP [Suspect]
     Indication: PULMONARY EMBOLISM
     Dosage: SUBCUTANEOUS
     Route: 058
     Dates: start: 20050201

REACTIONS (1)
  - DRUG RESISTANCE [None]
